FAERS Safety Report 5224653-3 (Version None)
Quarter: 2007Q1

REPORT INFORMATION
  Report Type: 
  Country: None (occurrence: None)
  Receive Date: 20070126
  Receipt Date: 20061130
  Transmission Date: 20070707
  Serious: Yes (Death)
  Sender: FDA-Public Use
  Company Number: T200601723

PATIENT
  Age: 45 Year
  Sex: 0

DRUGS (1)
  1. PROPOXYPHENE/ACETAMINOPHEN (PROPOXYPHENE [Suspect]
     Dosage: ORAL
     Route: 048

REACTIONS (1)
  - COMPLETED SUICIDE [None]
